FAERS Safety Report 16973238 (Version 1)
Quarter: 2019Q4

REPORT INFORMATION
  Report Type: Spontaneous
  Country: US (occurrence: US)
  Receive Date: 20191030
  Receipt Date: 20191030
  Transmission Date: 20200122
  Serious: No
  Sender: FDA-Public Use
  Company Number: US-SUNSHINE LAKE PHARMA CO, LTD.-2076167

PATIENT
  Age: 36 Year
  Sex: Female

DRUGS (2)
  1. CLARITHROMYCIN. [Suspect]
     Active Substance: CLARITHROMYCIN
     Indication: PRODUCT USED FOR UNKNOWN INDICATION
     Route: 048
  2. THERE WERE 2 SUSPECT MEDICATIONS IN THE PATIENT^S SKIN REACTION (BETAMETHASONE LOTION) [Suspect]
     Active Substance: BETAMETHASONE

REACTIONS (1)
  - Skin reaction [Unknown]
